FAERS Safety Report 24157740 (Version 3)
Quarter: 2024Q3

REPORT INFORMATION
  Report Type: Spontaneous
  Country: AU (occurrence: AU)
  Receive Date: 20240731
  Receipt Date: 20240807
  Transmission Date: 20241017
  Serious: No
  Sender: ABBVIE
  Company Number: AU-ABBVIE-5860183

PATIENT
  Age: 64 Year
  Sex: Male

DRUGS (6)
  1. CARBIDOPA\LEVODOPA [Suspect]
     Active Substance: CARBIDOPA\LEVODOPA
     Indication: Parkinson^s disease
     Dosage: INCREASED  CONTINUOUS RATE 3.1 ML AND EVENING DOSE 2.5 ML
     Route: 050
  2. CARBIDOPA\LEVODOPA [Suspect]
     Active Substance: CARBIDOPA\LEVODOPA
     Dosage: MORNING DOSE 9 ML, CONTINUOUS RATE 2.9 ML/H, EVENING DOSE 2 ML.
     Route: 050
  3. CARBIDOPA\LEVODOPA [Suspect]
     Active Substance: CARBIDOPA\LEVODOPA
     Dosage: MORNING DOSE 9 ML, CONTINUOUS RATE 3.2 ML/H, EVENING DOSE 2 ML  FOR 2-3
     Route: 050
  4. CARBIDOPA\LEVODOPA [Suspect]
     Active Substance: CARBIDOPA\LEVODOPA
     Dosage: MORNING DOSE 9 ML, CONTINUOUS RATE 3.0 ML/H, EVENING DOSE 2.0 ML
     Route: 050
  5. CARBIDOPA\LEVODOPA [Suspect]
     Active Substance: CARBIDOPA\LEVODOPA
     Dosage: 200/50 MG, MORNING DOSE (MD) 7 ML, CONTINUOUS RATE (CR) 2 ML/H, EXTRA DOSE (ED) 2 ML
     Route: 050
  6. SINEMET CR [Concomitant]
     Active Substance: CARBIDOPA\LEVODOPA
     Indication: Parkinson^s disease

REACTIONS (17)
  - Influenza like illness [Unknown]
  - Malaise [Unknown]
  - Lower respiratory tract infection [Unknown]
  - Stoma site discharge [Unknown]
  - Reduced facial expression [Unknown]
  - Dyskinesia [Unknown]
  - On and off phenomenon [Unknown]
  - Weight decreased [Unknown]
  - Muscle rigidity [Unknown]
  - Bradykinesia [Unknown]
  - Confusional state [Unknown]
  - Fatigue [Unknown]
  - Constipation [Unknown]
  - Hallucination, visual [Unknown]
  - Gait disturbance [Unknown]
  - Therapeutic product effect incomplete [Unknown]
  - Reflexes abnormal [Unknown]
